FAERS Safety Report 12820641 (Version 1)
Quarter: 2016Q4

REPORT INFORMATION
  Report Type: Spontaneous
  Country: FR (occurrence: FR)
  Receive Date: 20161006
  Receipt Date: 20161006
  Transmission Date: 20170207
  Serious: Yes (Hospitalization)
  Sender: FDA-Public Use
  Company Number: FR-SA-2016SA182182

PATIENT
  Age: 60 Year
  Sex: Female

DRUGS (7)
  1. CO-APROVEL [Suspect]
     Active Substance: HYDROCHLOROTHIAZIDE\IRBESARTAN
     Route: 048
     Dates: end: 20120306
  2. BISOPROLOL [Concomitant]
     Active Substance: BISOPROLOL
     Dosage: 5MG
  3. METFORMIN [Suspect]
     Active Substance: METFORMIN HYDROCHLORIDE
     Route: 048
     Dates: end: 20120306
  4. KARDEGIC [Concomitant]
     Active Substance: ASPIRIN LYSINE
     Dosage: 75 MG
  5. BYETTA [Suspect]
     Active Substance: EXENATIDE
     Route: 058
     Dates: start: 2011, end: 20120306
  6. LOXEN [Suspect]
     Active Substance: NICARDIPINE HYDROCHLORIDE
     Route: 048
     Dates: end: 20120306
  7. TAHOR [Concomitant]
     Active Substance: ATORVASTATIN CALCIUM
     Dosage: 20 MG

REACTIONS (5)
  - Acute kidney injury [Unknown]
  - Hyperkalaemia [Unknown]
  - Lactic acidosis [Unknown]
  - Acute pulmonary oedema [Unknown]
  - Vomiting [Unknown]

NARRATIVE: CASE EVENT DATE: 2011
